FAERS Safety Report 20346563 (Version 1)
Quarter: 2022Q1

REPORT INFORMATION
  Report Type: Spontaneous
  Country: US (occurrence: US)
  Receive Date: 20220118
  Receipt Date: 20220118
  Transmission Date: 20220423
  Serious: No
  Sender: FDA-Public Use
  Company Number: US-BAYER-2022A002661

PATIENT
  Age: 68 Year
  Sex: Male

DRUGS (2)
  1. GADAVIST [Suspect]
     Active Substance: GADOBUTROL
     Dosage: 8.5 ML, ONCE
  2. BENADRYL [Concomitant]
     Active Substance: DIPHENHYDRAMINE HYDROCHLORIDE
     Dosage: 50 MG

REACTIONS (6)
  - Rash [None]
  - Urticaria [None]
  - Pruritus [None]
  - Eye swelling [None]
  - Hypertension [None]
  - Hyperhidrosis [None]

NARRATIVE: CASE EVENT DATE: 20220106
